FAERS Safety Report 6329380-7 (Version None)
Quarter: 2009Q3

REPORT INFORMATION
  Report Type: 
  Country: None (occurrence: None)
  Receive Date: 20090824
  Receipt Date: 20090824
  Transmission Date: 20100115
  Serious: No
  Sender: FDA-Public Use
  Company Number: None

PATIENT
  Age: 35 Year
  Sex: Female
  Weight: 61.2356 kg

DRUGS (1)
  1. MIRENA [Suspect]
     Indication: CONTRACEPTION
     Dates: start: 20020301, end: 20050825

REACTIONS (4)
  - BLOOD HUMAN CHORIONIC GONADOTROPIN INCREASED [None]
  - CERVICAL DYSPLASIA [None]
  - DRUG EXPOSURE BEFORE PREGNANCY [None]
  - ECTOPIC PREGNANCY [None]
